FAERS Safety Report 23536182 (Version 1)
Quarter: 2024Q1

REPORT INFORMATION
  Report Type: Other
  Country: NO (occurrence: NO)
  Receive Date: 20240219
  Receipt Date: 20240219
  Transmission Date: 20240409
  Serious: Yes (Other)
  Sender: FDA-Public Use
  Company Number: NO-DENTSPLY-2024SCDP000039

PATIENT
  Sex: Female
  Weight: 70 kg

DRUGS (3)
  1. LIDOCAINE [Suspect]
     Active Substance: LIDOCAINE
     Indication: Anaesthesia
     Dosage: UNK DOSE OF LIDOCAINE CONCENTRATE FOR SOLUTION FOR INJECTION (N01BB02 - LIDOCAINE)
     Route: 042
     Dates: start: 2018, end: 2021
  2. ARTICAINE HYDROCHLORIDE AND EPINEPHRINE [Suspect]
     Active Substance: ARTICAINE HYDROCHLORIDE\EPINEPHRINE BITARTRATE
     Indication: Anaesthesia
     Dosage: UNK DOSE OF SEPTOCAINE FORTE SOLUTION FOR INJECTION (N01BB58 - ARTICAINE COMBINATIONS)
     Dates: start: 2018, end: 2018
  3. EPINEPHRINE [Suspect]
     Active Substance: EPINEPHRINE
     Indication: Product used for unknown indication
     Dosage: UNK
     Dates: start: 2021

REACTIONS (8)
  - Syncope [None]
  - Loss of consciousness [Unknown]
  - General physical health deterioration [None]
  - Chills [None]
  - Palpitations [None]
  - Nausea [None]
  - Respiration abnormal [None]
  - Vomiting [None]

NARRATIVE: CASE EVENT DATE: 20180101
